FAERS Safety Report 4595037-6 (Version None)
Quarter: 2005Q1

REPORT INFORMATION
  Report Type: 
  Country: None (occurrence: None)
  Receive Date: 20050224
  Receipt Date: 20040331
  Transmission Date: 20050727
  Serious: Yes (Life-Threatening, Hospitalization)
  Sender: FDA-Public Use
  Company Number: GXKR2004US00723

PATIENT
  Age: 73 Year
  Sex: Male

DRUGS (2)
  1. LISINOPRIL [Suspect]
     Indication: HYPERTENSION
     Dosage: 20 - 40 MG
  2. FUROSEMIDE [Suspect]
     Indication: OEDEMA PERIPHERAL

REACTIONS (9)
  - BLOOD PRESSURE ABNORMAL [None]
  - BRADYCARDIA [None]
  - DIARRHOEA [None]
  - ELECTROCARDIOGRAM T WAVE PEAKED [None]
  - HAEMODIALYSIS [None]
  - HYPERKALAEMIA [None]
  - HYPOVOLAEMIA [None]
  - METABOLIC ACIDOSIS [None]
  - RENAL FAILURE [None]
